FAERS Safety Report 8817260 (Version 1)
Quarter: 2012Q4

REPORT INFORMATION
  Report Type: 
  Country: FR (occurrence: FR)
  Receive Date: 20121004
  Receipt Date: 20121004
  Transmission Date: 20130627
  Serious: Yes (Hospitalization)
  Sender: FDA-Public Use
  Company Number: FR-GILEAD-2012-0062153

PATIENT
  Age: 66 Year
  Sex: Male

DRUGS (10)
  1. TRUVADA [Suspect]
     Indication: HIV INFECTION
     Dosage: 1 DF, QD
     Route: 048
     Dates: start: 20111125, end: 20120802
  2. REYATAZ [Suspect]
     Dosage: 300 mg, QD
     Route: 048
     Dates: start: 20091119, end: 20120802
  3. NORVIR [Concomitant]
     Dosage: 100 mg, QD
     Dates: start: 20111125
  4. PENTACARINAT [Concomitant]
     Dosage: 300 mg, UNK
     Route: 055
     Dates: start: 20120802
  5. EPIVIR [Concomitant]
     Dosage: 150 mg, UNK
     Route: 048
     Dates: start: 20120802
  6. PREZISTA [Concomitant]
     Dosage: 400 mg, BID
     Route: 048
     Dates: start: 20120802
  7. ZIAGEN [Concomitant]
     Dosage: 300 mg, BID
     Route: 048
     Dates: start: 20120802
  8. DIAMICRON [Concomitant]
     Dosage: 60 mg, QD
     Route: 048
     Dates: end: 20120823
  9. WELLVONE [Concomitant]
     Dosage: 750 mg, QD
     Route: 048
     Dates: end: 20120802
  10. KARDEGIC [Concomitant]
     Dosage: 75 mg, QD

REACTIONS (2)
  - Crystal nephropathy [Unknown]
  - Renal failure acute [Recovered/Resolved]
